FAERS Safety Report 14243571 (Version 2)
Quarter: 2021Q3

REPORT INFORMATION
  Report Type: Spontaneous
  Country: IN (occurrence: IN)
  Receive Date: 20171201
  Receipt Date: 20210824
  Transmission Date: 20211014
  Serious: Yes (Death, Other)
  Sender: FDA-Public Use
  Company Number: IN-PFIZER INC-2017469933

PATIENT
  Age: 60 Year
  Sex: Female

DRUGS (2)
  1. FEMARA [Concomitant]
     Active Substance: LETROZOLE
     Dosage: 2.5 MG, 1X/DAY
  2. PALBACE [Suspect]
     Active Substance: PALBOCICLIB
     Indication: BREAST CANCER METASTATIC
     Dosage: 125 MG, ONCE DAILY FOR 3 WEEKS ON 1 WEEK OFF
     Route: 048
     Dates: start: 20171011

REACTIONS (6)
  - Dyspnoea [Unknown]
  - Alopecia [Unknown]
  - Blood pressure increased [Unknown]
  - Cough [Recovered/Resolved]
  - Sleep disorder due to a general medical condition [Unknown]
  - Neoplasm progression [Fatal]

NARRATIVE: CASE EVENT DATE: 2017
